FAERS Safety Report 19300758 (Version 1)
Quarter: 2021Q2

REPORT INFORMATION
  Report Type: Spontaneous
  Country: US (occurrence: US)
  Receive Date: 20210525
  Receipt Date: 20210525
  Transmission Date: 20210717
  Serious: No
  Sender: FDA-Public Use
  Company Number: None

PATIENT
  Age: 84 Year
  Sex: Female
  Weight: 70.76 kg

DRUGS (14)
  1. PROCHLORPERAZINE MALEATE. [Concomitant]
     Active Substance: PROCHLORPERAZINE MALEATE
  2. ZOLPIDEM TARTRATE. [Concomitant]
     Active Substance: ZOLPIDEM TARTRATE
  3. VALSARTAN. [Concomitant]
     Active Substance: VALSARTAN
  4. ROSUVASTATIN. [Concomitant]
     Active Substance: ROSUVASTATIN
  5. METFORMIN HCL [Concomitant]
     Active Substance: METFORMIN HYDROCHLORIDE
  6. LOSARTAN. [Concomitant]
     Active Substance: LOSARTAN
  7. ONDANSETRON HCL [Concomitant]
     Active Substance: ONDANSETRON HYDROCHLORIDE
  8. CAPECITABINE. [Suspect]
     Active Substance: CAPECITABINE
     Indication: RECTAL CANCER
     Route: 048
     Dates: start: 20210324, end: 20210525
  9. LOPERAMIDE HCL [Concomitant]
     Active Substance: LOPERAMIDE HYDROCHLORIDE
  10. CAPECITABINE. [Suspect]
     Active Substance: CAPECITABINE
     Indication: RECTAL CANCER
     Route: 048
     Dates: start: 20180924, end: 20210525
  11. CARVEDILOL. [Concomitant]
     Active Substance: CARVEDILOL
  12. NAPHCON A [Concomitant]
     Active Substance: NAPHAZOLINE HYDROCHLORIDE\PHENIRAMINE MALEATE
  13. PREDNISOLONE ACETATE. [Concomitant]
     Active Substance: PREDNISOLONE ACETATE
  14. ELIQUIS [Concomitant]
     Active Substance: APIXABAN

REACTIONS (1)
  - Hospice care [None]

NARRATIVE: CASE EVENT DATE: 20210525
